FAERS Safety Report 6913019-3 (Version None)
Quarter: 2010Q3

REPORT INFORMATION
  Report Type: 
  Country: None (occurrence: None)
  Receive Date: 20100806
  Receipt Date: 20090603
  Transmission Date: 20110219
  Serious: Yes (Other)
  Sender: FDA-Public Use
  Company Number: US-PFIZER INC-2009203942

PATIENT
  Sex: Female
  Weight: 47.075 kg

DRUGS (9)
  1. DILANTIN [Suspect]
     Indication: CONVULSION
     Dosage: 200MG IN THE MORNING AND 300MG IN THE EVENING
     Route: 048
     Dates: start: 20050521
  2. XELODA [Suspect]
     Indication: HEPATIC NEOPLASM MALIGNANT
     Dosage: 1500 MG, 2X/DAY
     Route: 048
     Dates: start: 20090213
  3. XELODA [Suspect]
     Indication: BREAST CANCER METASTATIC
  4. OMEGA [Concomitant]
     Dosage: UNK
  5. MULTI-VITAMINS [Concomitant]
     Dosage: UNK
  6. HYDROCORTISONE [Concomitant]
     Dosage: UNK
  7. PERCOCET [Concomitant]
     Dosage: UNK
  8. ZANTAC [Concomitant]
     Dosage: UNK
  9. KYTRIL [Concomitant]
     Dosage: UNK

REACTIONS (3)
  - DISEASE PROGRESSION [None]
  - DRUG LEVEL INCREASED [None]
  - FATIGUE [None]
